FAERS Safety Report 16292160 (Version 1)
Quarter: 2019Q2

REPORT INFORMATION
  Report Type: Report from Study
  Country: US (occurrence: US)
  Receive Date: 20190509
  Receipt Date: 20190509
  Transmission Date: 20190711
  Serious: Yes (Hospitalization, Other)
  Sender: FDA-Public Use
  Company Number: US-PFIZER INC-2019195148

PATIENT
  Age: 59 Year
  Sex: Male

DRUGS (56)
  1. FAMOTIDINE. [Concomitant]
     Active Substance: FAMOTIDINE
  2. FUROSEMIDE. [Concomitant]
     Active Substance: FUROSEMIDE
  3. NITROGLYCERIN. [Concomitant]
     Active Substance: NITROGLYCERIN
  4. ROXICODONE [Concomitant]
     Active Substance: OXYCODONE HYDROCHLORIDE
  5. VALCYTE [Concomitant]
     Active Substance: VALGANCICLOVIR HYDROCHLORIDE
  6. CULTURELLE [Concomitant]
     Active Substance: LACTOBACILLUS RHAMNOSUS
  7. HYDRALAZINE [Concomitant]
     Active Substance: HYDRALAZINE HYDROCHLORIDE
  8. LIDOCAINE. [Concomitant]
     Active Substance: LIDOCAINE
  9. METHYLPREDNISOLONE. [Concomitant]
     Active Substance: METHYLPREDNISOLONE
  10. MYFORTIC [Concomitant]
     Active Substance: MYCOPHENOLATE SODIUM
  11. CONCENTRATED [Concomitant]
  12. LONITEN [Concomitant]
     Active Substance: MINOXIDIL
  13. ATIVAN [Concomitant]
     Active Substance: LORAZEPAM
  14. ACETYLCYSTEINE. [Concomitant]
     Active Substance: ACETYLCYSTEINE
  15. MELATONIN [Concomitant]
     Active Substance: MELATONIN
  16. MARCAINE [Concomitant]
     Active Substance: BUPIVACAINE HYDROCHLORIDE
  17. CALCIUM GLUCONATE. [Concomitant]
     Active Substance: CALCIUM GLUCONATE
  18. CELLCEPT [Concomitant]
     Active Substance: MYCOPHENOLATE MOFETIL\MYCOPHENOLATE MOFETIL HYDROCHLORIDE
  19. HEPARIN SODIUM. [Suspect]
     Active Substance: HEPARIN SODIUM
  20. RENA-VITE [Concomitant]
     Active Substance: ASCORBIC ACID\BIOTIN\CALCIUM PANTOTHENATE\CYANOCOBALAMIN\FOLIC ACID\NIACINAMIDE\PYRIDOXINE HYDROCHLORIDE\RIBOFLAVIN\THIAMINE MONONITRATE
  21. ASA [Concomitant]
     Active Substance: ASPIRIN
  22. FENTANYL. [Concomitant]
     Active Substance: FENTANYL
  23. FUNGIZONE [Concomitant]
     Active Substance: AMPHOTERICIN B
  24. ZOFRAN [Concomitant]
     Active Substance: ONDANSETRON HYDROCHLORIDE
  25. COLACE [Concomitant]
     Active Substance: DOCUSATE SODIUM
  26. NYSTATIN. [Concomitant]
     Active Substance: NYSTATIN
  27. SENNA [SENNA ALEXANDRINA] [Concomitant]
     Active Substance: SENNA LEAF
  28. RED BLOOD CELLS [Concomitant]
     Active Substance: HUMAN RED BLOOD CELL
  29. PRAVACHOL [Concomitant]
     Active Substance: PRAVASTATIN SODIUM
  30. NORVASC [Concomitant]
     Active Substance: AMLODIPINE BESYLATE
  31. ASPIRIN [ACETYLSALICYLIC ACID] [Concomitant]
     Active Substance: ASPIRIN
  32. BENADRYL [Concomitant]
     Active Substance: DIPHENHYDRAMINE HYDROCHLORIDE
  33. MAGNESIUM SULFATE. [Concomitant]
     Active Substance: MAGNESIUM SULFATE
  34. PROCRIT [Concomitant]
     Active Substance: ERYTHROPOIETIN
  35. TIRGON SUPPOSITORY [Concomitant]
  36. TACROLIMUS. [Concomitant]
     Active Substance: TACROLIMUS
  37. FISH OIL [Concomitant]
     Active Substance: FISH OIL
  38. METOPROLOL. [Concomitant]
     Active Substance: METOPROLOL
  39. ALBUMIN HUMAN [Concomitant]
     Active Substance: ALBUMIN HUMAN
  40. CLONIDINE. [Concomitant]
     Active Substance: CLONIDINE
  41. SALINE [BORIC ACID] [Concomitant]
  42. CARVEDILOL. [Concomitant]
     Active Substance: CARVEDILOL
  43. THYMOGLOBULIN [Concomitant]
     Active Substance: LAPINE T-LYMPHOCYTE IMMUNE GLOBULIN
  44. PREDNISONE. [Concomitant]
     Active Substance: PREDNISONE
  45. DILAUDID [Concomitant]
     Active Substance: HYDROMORPHONE HYDROCHLORIDE
  46. COQ10 [UBIDECARENONE] [Concomitant]
     Active Substance: UBIDECARENONE
  47. MAALOX [ALUMINIUM HYDROXIDE;MAGNESIUM HYDROXIDE] [Concomitant]
  48. ANCEF [ATAZANAVIR SULFATE] [Concomitant]
     Active Substance: ATAZANAVIR SULFATE
  49. ATORVASTATIN [Concomitant]
     Active Substance: ATORVASTATIN
  50. MIDAZOLAM [Concomitant]
     Active Substance: MIDAZOLAM HYDROCHLORIDE
  51. IMDUR [Concomitant]
     Active Substance: ISOSORBIDE MONONITRATE
  52. TYLENOL [Concomitant]
     Active Substance: ACETAMINOPHEN
  53. LESCOL [Concomitant]
     Active Substance: FLUVASTATIN SODIUM
  54. BACTRIM [Concomitant]
     Active Substance: SULFAMETHOXAZOLE\TRIMETHOPRIM
  55. LABETALOL [Concomitant]
     Active Substance: LABETALOL\LABETALOL HYDROCHLORIDE
  56. FRESH FROZEN PLASMA [Concomitant]
     Active Substance: HUMAN PLASMA

REACTIONS (8)
  - Incorrect dose administered [Unknown]
  - Diverticulitis [Recovered/Resolved]
  - Wound haematoma [Recovered/Resolved]
  - Clostridium difficile infection [Recovered/Resolved]
  - Haematoma [Recovered/Resolved]
  - Delayed graft function [Recovered/Resolved]
  - Acute myocardial infarction [Recovered/Resolved]
  - Transplant rejection [Recovered/Resolved]

NARRATIVE: CASE EVENT DATE: 20170731
